FAERS Safety Report 9404990 (Version 1)
Quarter: 2013Q3

REPORT INFORMATION
  Report Type: Spontaneous
  Country: US (occurrence: US)
  Receive Date: 20130717
  Receipt Date: 20130717
  Transmission Date: 20140515
  Serious: No
  Sender: FDA-Public Use
  Company Number: US-BRISTOL-MYERS SQUIBB COMPANY-18766337

PATIENT
  Age: 78 Year
  Sex: Male

DRUGS (8)
  1. YERVOY [Suspect]
     Dates: start: 20130328
  2. TYLENOL [Concomitant]
  3. HYDROCHLOROTHIAZIDE [Concomitant]
  4. BENAZEPRIL HCL [Concomitant]
  5. AMLODIPINE [Concomitant]
  6. SIMVASTATIN [Concomitant]
  7. INDOMETHACIN [Concomitant]
  8. PROCHLORPERAZINE [Concomitant]

REACTIONS (3)
  - Fatigue [Unknown]
  - Decreased appetite [Unknown]
  - Abdominal pain upper [Recovered/Resolved]
